FAERS Safety Report 25250952 (Version 2)
Quarter: 2025Q3

REPORT INFORMATION
  Report Type: Other
  Country: JP (occurrence: JP)
  Receive Date: 20250429
  Receipt Date: 20250701
  Transmission Date: 20251021
  Serious: Yes (Hospitalization, Other)
  Sender: DEXCEL LTD.
  Company Number: JP-DEXPHARM-2025-2759

PATIENT
  Age: 80 Year
  Sex: Female
  Weight: 50 kg

DRUGS (8)
  1. DONEPEZIL [Suspect]
     Active Substance: DONEPEZIL
     Indication: Cognitive disorder
  2. ESZOPICLONE [Suspect]
     Active Substance: ESZOPICLONE
     Indication: Insomnia
  3. TIAPRIDE [Suspect]
     Active Substance: TIAPRIDE
  4. BROTIZOLAM [Suspect]
     Active Substance: BROTIZOLAM
  5. DESLORATADINE [Suspect]
     Active Substance: DESLORATADINE
     Indication: Erythema
  6. TELMISARTAN [Concomitant]
     Active Substance: TELMISARTAN
     Indication: Hypertension
  7. HYDROCHLOROTHIAZIDE [Concomitant]
     Active Substance: HYDROCHLOROTHIAZIDE
     Indication: Hypertension
  8. FENOFIBRATE [Concomitant]
     Active Substance: FENOFIBRATE
     Indication: Dyslipidaemia

REACTIONS (3)
  - Drug-induced liver injury [Recovered/Resolved]
  - Off label use [Recovered/Resolved]
  - Altered state of consciousness [Recovering/Resolving]
